FAERS Safety Report 7929466-7 (Version None)
Quarter: 2011Q4

REPORT INFORMATION
  Report Type: 
  Country: None (occurrence: None)
  Receive Date: 20111121
  Receipt Date: 20111109
  Transmission Date: 20120403
  Serious: No
  Sender: FDA-Public Use
  Company Number: US-BIOGENIDEC-2011BI043141

PATIENT
  Sex: Female

DRUGS (1)
  1. AVONEX [Suspect]
     Indication: MULTIPLE SCLEROSIS
     Route: 030
     Dates: start: 20060401, end: 20090601

REACTIONS (4)
  - URINARY TRACT INFECTION [None]
  - FUNGAL INFECTION [None]
  - DIABETES MELLITUS [None]
  - VAGINAL INFECTION [None]
